FAERS Safety Report 8853104 (Version 3)
Quarter: 2015Q3

REPORT INFORMATION
  Report Type: Report from Study
  Country: US (occurrence: US)
  Receive Date: 20121022
  Receipt Date: 20150812
  Transmission Date: 20151125
  Serious: Yes (Hospitalization, Other)
  Sender: FDA-Public Use
  Company Number: US-ROCHE-1117080

PATIENT
  Age: 15 Year
  Sex: Male

DRUGS (6)
  1. NUTROPIN AQ [Suspect]
     Active Substance: SOMATROPIN
     Indication: FACIODIGITOGENITAL DYSPLASIA
     Route: 058
  2. NUTROPIN AQ [Suspect]
     Active Substance: SOMATROPIN
     Route: 058
  3. NUTROPIN AQ [Suspect]
     Active Substance: SOMATROPIN
     Indication: ALAGILLE SYNDROME
     Route: 058
  4. NUTROPIN AQ [Suspect]
     Active Substance: SOMATROPIN
     Indication: NOONAN SYNDROME
     Route: 058
  5. NUTROPIN AQ [Suspect]
     Active Substance: SOMATROPIN
     Route: 058
  6. NUTROPIN AQ [Suspect]
     Active Substance: SOMATROPIN
     Indication: SILVER-RUSSELL SYNDROME
     Route: 058
     Dates: start: 19991201, end: 20070911

REACTIONS (2)
  - Cerebral disorder [Unknown]
  - Moyamoya disease [Recovered/Resolved]

NARRATIVE: CASE EVENT DATE: 200708
